APPROVED DRUG PRODUCT: CETIRIZINE HYDROCHLORIDE ALLERGY
Active Ingredient: CETIRIZINE HYDROCHLORIDE
Strength: 5MG
Dosage Form/Route: TABLET;ORAL
Application: A077946 | Product #001
Applicant: PLD ACQUISITIONS LLC DBA AVEMA PHARMA SOLUTIONS
Approved: Dec 27, 2007 | RLD: No | RS: No | Type: OTC